FAERS Safety Report 4897330-6 (Version None)
Quarter: 2005Q4

REPORT INFORMATION
  Report Type: 
  Country: None (occurrence: None)
  Receive Date: 20051223
  Receipt Date: 20050902
  Transmission Date: 20060501
  Serious: No
  Sender: FDA-Public Use
  Company Number: 05P-163-0310227-00

PATIENT
  Age: 42 Year
  Sex: Female
  Weight: 107 kg

DRUGS (7)
  1. HUMIRA [Suspect]
     Indication: RHEUMATOID ARTHRITIS
     Dosage: 40 MG, 1 IN 1 D, SUBCUTANEOUS
     Route: 058
     Dates: start: 20030101
  2. SERETIDE MITE [Concomitant]
  3. SPIRIVA [Concomitant]
  4. GLIMEPIRIDE [Concomitant]
  5. ZOCOR [Concomitant]
  6. HYDROXYCHLOROQUINE PHOSPHATE [Concomitant]
  7. MEDFORMIN [Concomitant]

REACTIONS (1)
  - INTERVERTEBRAL DISC PROTRUSION [None]
